FAERS Safety Report 24568185 (Version 1)
Quarter: 2024Q4

REPORT INFORMATION
  Report Type: Report from Study
  Country: CA (occurrence: CA)
  Receive Date: 20241031
  Receipt Date: 20241031
  Transmission Date: 20250115
  Serious: Yes (Other)
  Sender: ABBVIE
  Company Number: CA-ABBVIE-5979182

PATIENT
  Sex: Male

DRUGS (1)
  1. SKYRIZI [Suspect]
     Active Substance: RISANKIZUMAB-RZAA
     Indication: Psoriasis
     Route: 058
     Dates: start: 20210127

REACTIONS (5)
  - Appendicectomy [Recovering/Resolving]
  - Pain [Recovering/Resolving]
  - Abdominal discomfort [Unknown]
  - Post procedural complication [Unknown]
  - Malaise [Unknown]
